FAERS Safety Report 22160156 (Version 1)
Quarter: 2023Q1

REPORT INFORMATION
  Report Type: Spontaneous
  Country: US (occurrence: None)
  Receive Date: 20230330
  Receipt Date: 20230330
  Transmission Date: 20230418
  Serious: No
  Sender: FDA-Public Use
  Company Number: None

PATIENT
  Age: 5 Year
  Sex: Male
  Weight: 18 kg

DRUGS (2)
  1. DEXMETHYLPHENIDATE [Suspect]
     Active Substance: DEXMETHYLPHENIDATE
     Indication: Attention deficit hyperactivity disorder
     Dosage: 10 MG DAILY ORAL
     Route: 048
     Dates: start: 20230120
  2. DEXMETHYLPHENIDATE HCL 10 MG ER CAP [Concomitant]
     Dates: start: 20230120

REACTIONS (3)
  - Product substitution issue [None]
  - Behaviour disorder [None]
  - Educational problem [None]

NARRATIVE: CASE EVENT DATE: 20230217
